FAERS Safety Report 9096889 (Version 2)
Quarter: 2013Q1

REPORT INFORMATION
  Report Type: Spontaneous
  Country: US (occurrence: None)
  Receive Date: 20130125
  Receipt Date: 20130219
  Transmission Date: 20140127
  Serious: Yes (Other)
  Sender: FDA-Public Use
  Company Number: 2013-0289

PATIENT
  Age: 8 Year
  Sex: Male
  Weight: 14.4 kg

DRUGS (1)
  1. INCRELEX [Suspect]
     Indication: PRIMARY INSULIN LIKE GROWTH FACTOR-1 DEFICIENCY
     Dosage: SOMETIME AFER 13/JUN/2012

REACTIONS (1)
  - Bone marrow transplant [None]
